FAERS Safety Report 7499180-3 (Version None)
Quarter: 2011Q2

REPORT INFORMATION
  Report Type: 
  Country: None (occurrence: None)
  Receive Date: 20110524
  Receipt Date: 20110511
  Transmission Date: 20111010
  Serious: Yes (Hospitalization, Other)
  Sender: FDA-Public Use
  Company Number: US-ELI_LILLY_AND_COMPANY-US201008008536

PATIENT
  Sex: Female

DRUGS (28)
  1. FORTEO [Suspect]
     Dosage: 20 UG, DAILY (1/D)
     Dates: start: 20100920
  2. SODIUM CHLORIDE [Concomitant]
     Indication: DEHYDRATION
     Dosage: UNK, UNKNOWN
     Route: 065
  3. FORTEO [Suspect]
     Indication: OSTEOPOROSIS
     Dosage: 20 UG, DAILY (1/D)
     Route: 065
     Dates: start: 20100819, end: 20100908
  4. LISINOPRIL [Concomitant]
     Dosage: 20/2.5MG, DAILY
     Route: 065
  5. BONIVA [Concomitant]
     Dosage: 150 MG, MONTHLY (1/M)
     Route: 065
  6. MULTI-VITAMIN [Concomitant]
     Dosage: UNK, DAILY (1/D)
     Route: 065
  7. ZINC [Concomitant]
     Dosage: 50 MG, DAILY (1/D)
     Route: 065
  8. VITAMIN D [Concomitant]
     Dosage: 1000 IU, 2/D
     Route: 065
  9. CALCIUM CARBONATE [Concomitant]
     Dosage: 1200 MG, 2/D
     Route: 065
  10. LEVOTHYROXINE SODIUM [Concomitant]
     Dosage: UNK, UNKNOWN
  11. PANTOPRAZOLE SODIUM [Concomitant]
     Dosage: 40 MG, DAILY (1/D)
     Route: 065
  12. MYSOLINE [Concomitant]
     Dosage: 50MG 0.5MG, 2/D
     Route: 065
  13. PRAVASTAN [Concomitant]
     Dosage: UNK, UNKNOWN
  14. ALBUTEROL SULFATE AUTOHALER [Concomitant]
     Dosage: 2 PUFFS UP TO 3/D
     Route: 065
  15. OPIUM TINCTURE [Concomitant]
     Dosage: UNK, UNKNOWN
  16. GENTEAL [Concomitant]
     Dosage: 1 DROP, EACH MORNING
  17. SPIRIVA [Concomitant]
     Dosage: 1 PUFF, DAILY (1/D)
     Route: 065
  18. TRAMADOL HCL [Concomitant]
     Indication: PAIN
     Dosage: 50 MG, 1 OR 2 TABLETS EVERY 8 HRS AS NEEDED
  19. ANTIBIOTICS [Concomitant]
     Indication: PNEUMONIA
     Dosage: UNK, UNKNOWN
     Route: 042
  20. CALCITONIN [Concomitant]
     Dosage: 200 IU, 1 PUFF DAILY (1/D)
     Route: 045
  21. ACYCLOVIR [Concomitant]
     Dosage: UNK, UNKNOWN
  22. HYOSCYAMINE [Concomitant]
     Dosage: 0.125 MG, 1 OR 2 TABLETS UNDER THE TONGUE AS NEEDED
     Route: 048
  23. GENTEAL [Concomitant]
     Dosage: 1 DROP, EACH EVENING
  24. HYDROCHLOROTHIAZIDE [Concomitant]
     Dosage: UNK, UNKNOWN
  25. GABAPENTIN [Concomitant]
     Dosage: 300 MG, 2 CAPSULES 3/D
     Route: 065
  26. LOVAZA [Concomitant]
     Dosage: UNK, 2/D
     Route: 065
  27. LEVOXYL [Concomitant]
     Dosage: 100 MG, DAILY (1/D) 6 DAYS PER WEEK
  28. IBUPROFEN [Concomitant]
     Dosage: 800 MG, AS NEEDED
     Route: 065

REACTIONS (5)
  - LUMBAR VERTEBRAL FRACTURE [None]
  - DEHYDRATION [None]
  - PNEUMONIA [None]
  - BACK PAIN [None]
  - DRUG DOSE OMISSION [None]
